FAERS Safety Report 6474935-2 (Version None)
Quarter: 2009Q4

REPORT INFORMATION
  Report Type: 
  Country: None (occurrence: None)
  Receive Date: 20091119
  Receipt Date: 20091010
  Transmission Date: 20100525
  Serious: No
  Sender: FDA-Public Use
  Company Number: WAES 0910USA01373

PATIENT
  Age: 38 Year
  Sex: Male

DRUGS (6)
  1. JANUVIA [Suspect]
     Indication: DIABETES MELLITUS
     Dosage: UNL/UNK/PO
     Route: 048
     Dates: start: 20090810, end: 20090101
  2. DIOVAN [Concomitant]
  3. GLUCOPHAGE [Concomitant]
  4. MOTRIN [Concomitant]
  5. TRICOR [Concomitant]
  6. VICODIN [Concomitant]

REACTIONS (2)
  - BLOOD GLUCOSE DECREASED [None]
  - POLLAKIURIA [None]
